FAERS Safety Report 25436941 (Version 1)
Quarter: 2025Q2

REPORT INFORMATION
  Report Type: Other
  Country: CN (occurrence: CN)
  Receive Date: 20250615
  Receipt Date: 20250615
  Transmission Date: 20250716
  Serious: Yes (Other)
  Sender: XCOVERY HOLDINGS
  Company Number: CN-XCO-202500036

PATIENT
  Age: 88 Year
  Sex: Male
  Weight: 48 kg

DRUGS (1)
  1. ENSARTINIB HYDROCHLORIDE [Suspect]
     Active Substance: ENSARTINIB HYDROCHLORIDE
     Indication: Diffuse large B-cell lymphoma
     Route: 048
     Dates: start: 20241205, end: 20241217

REACTIONS (3)
  - Coma [Recovered/Resolved]
  - Delirium [Recovered/Resolved]
  - Somnolence [Recovered/Resolved]

NARRATIVE: CASE EVENT DATE: 20241214
